FAERS Safety Report 8357755-3 (Version None)
Quarter: 2012Q2

REPORT INFORMATION
  Report Type: 
  Country: None (occurrence: None)
  Receive Date: 20120514
  Receipt Date: 20110404
  Transmission Date: 20120825
  Serious: No
  Sender: FDA-Public Use
  Company Number: US-ALEXION-A201100472

PATIENT
  Sex: Male

DRUGS (1)
  1. SOLIRIS [Suspect]
     Indication: PAROXYSMAL NOCTURNAL HAEMOGLOBINURIA
     Dosage: 900 MG, Q2W
     Route: 042

REACTIONS (9)
  - HERNIA [None]
  - OEDEMA PERIPHERAL [None]
  - ARTHRALGIA [None]
  - COOMBS TEST POSITIVE [None]
  - PHYSICAL DISABILITY [None]
  - COUGH [None]
  - HAEMOLYSIS [None]
  - PYREXIA [None]
  - PAIN IN EXTREMITY [None]
